FAERS Safety Report 17623246 (Version 8)
Quarter: 2020Q3

REPORT INFORMATION
  Report Type: Spontaneous
  Country: DE (occurrence: DE)
  Receive Date: 20200403
  Receipt Date: 20200904
  Transmission Date: 20201102
  Serious: Yes (Life-Threatening, Hospitalization, Other)
  Sender: FDA-Public Use
  Company Number: DE-SA-2020SA081110

PATIENT

DRUGS (25)
  1. INSULIN GLARGINE [Suspect]
     Active Substance: INSULIN GLARGINE
     Indication: DIABETES MELLITUS
     Dosage: 15 INTERNATIONAL UNIT, DAILY
     Route: 065
     Dates: start: 201808
  2. SPIRONOLACTONE. [Interacting]
     Active Substance: SPIRONOLACTONE
     Indication: CORONARY ARTERY DISEASE
     Dosage: 1?0?0, 50 MG, ONCE DAILY IN THE MORNING
     Route: 065
     Dates: start: 201808
  3. ALLOPURINOL. [Interacting]
     Active Substance: ALLOPURINOL
     Indication: GOUT
     Dosage: 100 MILLIGRAM, DAILY
     Route: 065
     Dates: start: 201808
  4. IVABRADINE HYDROCHLORIDE [Interacting]
     Active Substance: IVABRADINE HYDROCHLORIDE
     Indication: CARDIAC DISORDER
     Dosage: 7.5 MILLIGRAM, DAILY
     Route: 065
     Dates: start: 201808
  5. ELIQUIS [Interacting]
     Active Substance: APIXABAN
     Indication: CEREBROVASCULAR ACCIDENT PROPHYLAXIS
     Dosage: 5 MILLIGRAM, BID
     Route: 065
     Dates: start: 201808
  6. SIMVASTATIN. [Interacting]
     Active Substance: SIMVASTATIN
     Indication: DIABETES MELLITUS
     Dosage: 10 MILLIGRAM, DAILY
     Route: 065
  7. SITAGLIPTIN/METFORMIN [Interacting]
     Active Substance: METFORMIN\SITAGLIPTIN
     Indication: DIABETES MELLITUS
     Dosage: 1 DOSAGE FORM, Q12H
     Route: 065
     Dates: start: 201808
  8. MILGAMMA PROTEKT [Interacting]
     Active Substance: BENFOTIAMINE
     Indication: CEREBROVASCULAR ACCIDENT PROPHYLAXIS
  9. TORASEMIDE [Interacting]
     Active Substance: TORSEMIDE
     Indication: RENAL DISORDER
     Dosage: 10 MILLIGRAM, QD IN MORNING, DAILY,1?0?0
     Route: 065
     Dates: start: 201808
  10. SIMVASTATIN. [Interacting]
     Active Substance: SIMVASTATIN
     Indication: CORONARY ARTERY DISEASE
     Dosage: 40 MILLIGRAM, DAILY, 0?0?1
     Route: 048
  11. CARVEDILOL. [Interacting]
     Active Substance: CARVEDILOL
     Indication: CARDIAC DISORDER
     Dosage: 1?0?1
     Route: 065
     Dates: start: 201808
  12. LEVETIRACETAM. [Concomitant]
     Active Substance: LEVETIRACETAM
     Dosage: 1?0?1
  13. ELIQUIS [Interacting]
     Active Substance: APIXABAN
     Indication: ATRIAL FIBRILLATION
     Dosage: 5 MG, TWICE DAILY
     Route: 065
     Dates: start: 201808
  14. AMLODIPINE BESILATE [Interacting]
     Active Substance: AMLODIPINE BESYLATE
     Indication: HYPERTENSION
     Dosage: 1?0?15 MILLIGRAM, BID
     Route: 065
     Dates: start: 201808
  15. RAMIPRIL. [Interacting]
     Active Substance: RAMIPRIL
     Indication: HYPERTENSION
     Dosage: 5 MILLIGRAM, BID
     Route: 065
     Dates: start: 201808
  16. SIMVASTATIN. [Interacting]
     Active Substance: SIMVASTATIN
     Indication: HYPERTENSION
     Dosage: 15 IU, QD
     Route: 065
  17. PROCORALAN [Interacting]
     Active Substance: IVABRADINE
     Indication: CARDIAC DISORDER
     Dosage: 7.5 MILLIGRAM, DAILY
     Route: 065
     Dates: start: 201808
  18. MILGAMMA PROTEKT [Interacting]
     Active Substance: BENFOTIAMINE
     Indication: CARDIOVASCULAR DISORDER
     Dosage: 300 MG, QD
     Route: 065
     Dates: start: 201808
  19. SIMVASTATIN. [Interacting]
     Active Substance: SIMVASTATIN
     Dosage: 50 MG, QD
     Route: 065
  20. BEVACIZUMAB. [Interacting]
     Active Substance: BEVACIZUMAB
     Indication: DIABETIC RETINAL OEDEMA
     Dosage: EINSPRITZEN INS RECHTE AUGE UM 13.30 UHRINJECT IN THE RIGHT EYE AT 13.30
     Route: 031
     Dates: start: 20200115
  21. AVASTIN [ATORVASTATIN CALCIUM] [Interacting]
     Active Substance: ATORVASTATIN CALCIUM
     Indication: DIABETIC RETINAL OEDEMA
     Dosage: EINSPRITZEN INS RECHTE AUGE UM 13.30 UHRINJECT IN THE RIGHT EYE AT 13.30
     Route: 031
     Dates: start: 20200115
  22. JANUMET [Interacting]
     Active Substance: METFORMIN HYDROCHLORIDE\SITAGLIPTIN PHOSPHATE
     Indication: DIABETES MELLITUS
     Dosage: 2 DF, Q12H
     Route: 065
     Dates: start: 201808
  23. LEVETIRACETAM. [Concomitant]
     Active Substance: LEVETIRACETAM
     Dosage: 1?0?1
     Route: 065
  24. SPIRONOLACTONE. [Interacting]
     Active Substance: SPIRONOLACTONE
     Indication: CARDIAC DISORDER
     Dosage: 50MG, DAILY
     Route: 048
     Dates: start: 20110506
  25. SIMVASTATIN. [Interacting]
     Active Substance: SIMVASTATIN
     Indication: BLOOD CHOLESTEROL
     Dosage: 40 MG, ONCE DAILY AT NIGHT, 0?0?1
     Route: 065
     Dates: start: 201808

REACTIONS (9)
  - Muscle spasms [Recovered/Resolved]
  - Seizure [Recovered/Resolved]
  - Oculogyric crisis [Recovered/Resolved]
  - Product use issue [Unknown]
  - Movement disorder [Recovered/Resolved]
  - Status epilepticus [Recovering/Resolving]
  - Eye movement disorder [Recovered/Resolved]
  - Drug interaction [Unknown]
  - Off label use [Unknown]

NARRATIVE: CASE EVENT DATE: 201808
